FAERS Safety Report 12517455 (Version 1)
Quarter: 2016Q2

REPORT INFORMATION
  Report Type: Spontaneous
  Country: KR (occurrence: KR)
  Receive Date: 20160630
  Receipt Date: 20160630
  Transmission Date: 20160815
  Serious: Yes (Hospitalization)
  Sender: FDA-Public Use
  Company Number: KR-FTV20160328-01

PATIENT
  Age: 40 Year
  Sex: Female

DRUGS (1)
  1. FACTIVE [Suspect]
     Active Substance: GEMIFLOXACIN MESYLATE
     Indication: SINUSITIS
     Route: 048
     Dates: start: 20160317, end: 20160323

REACTIONS (3)
  - Rash generalised [None]
  - Rash pruritic [Recovering/Resolving]
  - Rash macular [None]

NARRATIVE: CASE EVENT DATE: 20160324
